FAERS Safety Report 18049775 (Version 1)
Quarter: 2020Q3

REPORT INFORMATION
  Report Type: Spontaneous
  Country: US (occurrence: US)
  Receive Date: 20200721
  Receipt Date: 20200721
  Transmission Date: 20201103
  Serious: No
  Sender: FDA-Public Use
  Company Number: None

PATIENT
  Age: 25 Year
  Sex: Female
  Weight: 51.3 kg

DRUGS (10)
  1. NURTEC ODT [Suspect]
     Active Substance: RIMEGEPANT SULFATE
     Indication: MIGRAINE
     Route: 048
     Dates: start: 20200717, end: 20200719
  2. ZYRTEC [Concomitant]
     Active Substance: CETIRIZINE HYDROCHLORIDE
  3. PEPCID [Concomitant]
     Active Substance: FAMOTIDINE
  4. INDOMETHACIN. [Concomitant]
     Active Substance: INDOMETHACIN
  5. NADOLOL. [Concomitant]
     Active Substance: NADOLOL
  6. CYPROHEPTADINE. [Concomitant]
     Active Substance: CYPROHEPTADINE
  7. FIORICET [Concomitant]
     Active Substance: ACETAMINOPHEN\BUTALBITAL\CAFFEINE
  8. FIORICET [Concomitant]
     Active Substance: ACETAMINOPHEN\BUTALBITAL\CAFFEINE
  9. MIDODRINE [Concomitant]
     Active Substance: MIDODRINE
  10. MICROGESTIN [Concomitant]
     Active Substance: ETHINYL ESTRADIOL\NORETHINDRONE ACETATE

REACTIONS (2)
  - Condition aggravated [None]
  - Nausea [None]

NARRATIVE: CASE EVENT DATE: 20200719
